FAERS Safety Report 21783543 (Version 1)
Quarter: 2022Q4

REPORT INFORMATION
  Report Type: Spontaneous
  Country: US (occurrence: US)
  Receive Date: 20221227
  Receipt Date: 20221227
  Transmission Date: 20230113
  Serious: No
  Sender: FDA-Public Use
  Company Number: US-SA-SAC20221223001643

PATIENT
  Sex: Female

DRUGS (1)
  1. DUPIXENT [Suspect]
     Active Substance: DUPILUMAB
     Indication: Asthma
     Dosage: 300MG, Q4W
     Route: 058
     Dates: start: 20221018

REACTIONS (5)
  - Pruritus [Not Recovered/Not Resolved]
  - Infection [Not Recovered/Not Resolved]
  - Product dose omission issue [Unknown]
  - Illness [Not Recovered/Not Resolved]
  - Drug ineffective [Unknown]
